FAERS Safety Report 13558389 (Version 1)
Quarter: 2017Q2

REPORT INFORMATION
  Report Type: Spontaneous
  Country: US (occurrence: US)
  Receive Date: 20170518
  Receipt Date: 20170518
  Transmission Date: 20170830
  Serious: Yes (Other)
  Sender: FDA-Public Use
  Company Number: None

PATIENT
  Age: 30 Year
  Sex: Female
  Weight: 69.75 kg

DRUGS (1)
  1. BUPRENORPHINE/NALOXONE TABLETS [Suspect]
     Active Substance: BUPRENORPHINE\NALOXONE
     Indication: DRUG USE DISORDER
     Route: 048
     Dates: start: 20170503, end: 20170518

REACTIONS (6)
  - Nausea [None]
  - Product substitution issue [None]
  - Abdominal discomfort [None]
  - Exposure during pregnancy [None]
  - Vomiting [None]
  - Drug intolerance [None]

NARRATIVE: CASE EVENT DATE: 20170503
